FAERS Safety Report 17545095 (Version 1)
Quarter: 2020Q1

REPORT INFORMATION
  Report Type: Spontaneous
  Country: US (occurrence: US)
  Receive Date: 20200313
  Receipt Date: 20200313
  Transmission Date: 20200409
  Serious: No
  Sender: FDA-Public Use
  Company Number: None

PATIENT
  Age: 49 Year
  Sex: Male
  Weight: 78.75 kg

DRUGS (1)
  1. HAND SANITIZER HAND RX [Suspect]
     Active Substance: ALCOHOL
     Route: 061

REACTIONS (1)
  - Product expiration date issue [None]

NARRATIVE: CASE EVENT DATE: 20200313
